FAERS Safety Report 23754283 (Version 1)
Quarter: 2024Q2

REPORT INFORMATION
  Report Type: Spontaneous
  Country: US (occurrence: US)
  Receive Date: 20240418
  Receipt Date: 20240418
  Transmission Date: 20240715
  Serious: No
  Sender: FDA-Public Use
  Company Number: US-SA-SAC20240415001217

PATIENT
  Age: 15 Year
  Sex: Female

DRUGS (3)
  1. DUPIXENT [Suspect]
     Active Substance: DUPILUMAB
     Indication: Dermatitis atopic
     Dosage: 300 MG, QOW
     Route: 058
     Dates: start: 20230623, end: 202401
  2. DUPIXENT [Suspect]
     Active Substance: DUPILUMAB
     Dosage: UNK
     Route: 058
     Dates: start: 2024
  3. ALLEGRA [Concomitant]
     Active Substance: FEXOFENADINE HYDROCHLORIDE

REACTIONS (5)
  - Vision blurred [Not Recovered/Not Resolved]
  - COVID-19 [Unknown]
  - Ocular discomfort [Not Recovered/Not Resolved]
  - Eye pruritus [Unknown]
  - Dry eye [Unknown]

NARRATIVE: CASE EVENT DATE: 20231201
